FAERS Safety Report 5102166-7 (Version None)
Quarter: 2006Q3

REPORT INFORMATION
  Report Type: 
  Country: None (occurrence: None)
  Receive Date: 20060912
  Receipt Date: 20060623
  Transmission Date: 20061208
  Serious: Yes (Other)
  Sender: FDA-Public Use
  Company Number: US-BAYER-200612670BCC

PATIENT
  Age: 74 Year
  Sex: Female
  Weight: 71 kg

DRUGS (5)
  1. ALEVE (CAPLET) [Suspect]
     Indication: ARTHRALGIA
     Dosage: TOTAL DAILY DOSE: 220 MG  UNIT DOSE: 220 MG
     Route: 048
     Dates: end: 20060622
  2. PROZAC [Suspect]
  3. PREMPRO [Suspect]
     Indication: HORMONE THERAPY
  4. ASPIRIN [Suspect]
     Indication: DRUG USE FOR UNKNOWN INDICATION
  5. ZESTRIL [Concomitant]
     Indication: CARDIAC VALVE DISEASE

REACTIONS (2)
  - METRORRHAGIA [None]
  - VAGINAL HAEMORRHAGE [None]
